FAERS Safety Report 20226987 (Version 1)
Quarter: 2021Q4

REPORT INFORMATION
  Report Type: Report from Study
  Country: GB (occurrence: GB)
  Receive Date: 20211224
  Receipt Date: 20211224
  Transmission Date: 20220303
  Serious: Yes (Hospitalization, Other)
  Sender: FDA-Public Use
  Company Number: GB-CELLTRION INC.-2021GB017449

PATIENT

DRUGS (8)
  1. TRASTUZUMAB [Suspect]
     Active Substance: TRASTUZUMAB
     Indication: Breast cancer metastatic
     Dosage: 600 MG (PHARMACEUTICAL DOSE FORM (FREE TEXT): 231)
     Route: 058
     Dates: start: 20180202, end: 20210827
  2. DENOSUMAB [Suspect]
     Active Substance: DENOSUMAB
     Indication: Breast cancer metastatic
     Dosage: UNK
     Route: 058
     Dates: start: 20201231
  3. DENOSUMAB [Suspect]
     Active Substance: DENOSUMAB
     Dosage: UNK
     Route: 058
     Dates: start: 20201231
  4. EXEMESTANE [Suspect]
     Active Substance: EXEMESTANE
     Indication: Breast cancer metastatic
     Dosage: 25 MG, ONCE DAILY
     Route: 048
     Dates: start: 20180119, end: 20180126
  5. LETROZOLE [Suspect]
     Active Substance: LETROZOLE
     Indication: Breast cancer metastatic
     Dosage: 2.5 MG, ONCE DAILY
     Route: 048
     Dates: start: 20180525, end: 20181011
  6. LETROZOLE [Suspect]
     Active Substance: LETROZOLE
     Dosage: 2.5 MG, ONCE DAILY
     Route: 048
     Dates: start: 20180119, end: 20180126
  7. PACLITAXEL [Suspect]
     Active Substance: PACLITAXEL
     Indication: Breast cancer metastatic
     Dosage: UNK
     Route: 042
     Dates: start: 20180202, end: 20210518
  8. ADO-TRASTUZUMAB EMTANSINE [Suspect]
     Active Substance: ADO-TRASTUZUMAB EMTANSINE
     Indication: Breast cancer metastatic
     Dosage: 420 MG, EVERY 3 WEEKS (PHARMACEUTICAL DOSE FORM (FREE TEXT): 230)
     Route: 042
     Dates: start: 20181019, end: 20190827

REACTIONS (3)
  - Vomiting [Recovered/Resolved with Sequelae]
  - Diarrhoea [Recovered/Resolved with Sequelae]
  - Off label use [Unknown]

NARRATIVE: CASE EVENT DATE: 20211101
